FAERS Safety Report 7868874-X (Version None)
Quarter: 2011Q4

REPORT INFORMATION
  Report Type: 
  Country: None (occurrence: None)
  Receive Date: 20111024
  Receipt Date: 20111011
  Transmission Date: 20120403
  Serious: Yes (Other)
  Sender: FDA-Public Use
  Company Number: 2011SP048273

PATIENT
  Age: 39 Year
  Sex: Female

DRUGS (6)
  1. LORATADINE [Suspect]
     Indication: RHINITIS
     Dosage: 10 MG;QD
     Dates: start: 20050101
  2. GLANDOSANE [Concomitant]
  3. BECLOMETHASONE DIPROPIONATE [Concomitant]
  4. AMITRIPTYLINE HCL [Suspect]
     Indication: HEADACHE
     Dosage: 50 MG;QD
  5. CITALOPRAM HYDROBROMIDE [Concomitant]
  6. VENTOLIN [Concomitant]

REACTIONS (3)
  - MATERNAL EXPOSURE DURING PREGNANCY [None]
  - ABORTION SPONTANEOUS [None]
  - PREGNANCY [None]
